FAERS Safety Report 9797941 (Version 2)
Quarter: 2014Q1

REPORT INFORMATION
  Report Type: Spontaneous
  Country: US (occurrence: US)
  Receive Date: 20140106
  Receipt Date: 20140221
  Transmission Date: 20141002
  Serious: Yes (Death)
  Sender: FDA-Public Use
  Company Number: US-ASTELLAS-2013US013607

PATIENT
  Age: 79 Year
  Sex: Female

DRUGS (6)
  1. TARCEVA [Suspect]
     Indication: LUNG NEOPLASM MALIGNANT
     Dosage: 100 MG, UID/QD
     Route: 048
     Dates: start: 20131203, end: 20131205
  2. NORVASC [Concomitant]
     Indication: PRODUCT USED FOR UNKNOWN INDICATION
     Dosage: 6 MG, UID/QD
     Route: 048
     Dates: start: 20131217
  3. LISINOPRIL [Concomitant]
     Indication: PRODUCT USED FOR UNKNOWN INDICATION
     Dosage: 10 MG, UID/QD
     Route: 048
     Dates: start: 20131217
  4. LORTAB                             /00607101/ [Concomitant]
     Indication: PRODUCT USED FOR UNKNOWN INDICATION
     Dosage: 7.5 MG, PRN
     Route: 048
     Dates: end: 20131217
  5. ZOLOFT [Concomitant]
     Indication: PRODUCT USED FOR UNKNOWN INDICATION
     Dosage: 50 MG, UID/QD
     Route: 048
     Dates: end: 20131217
  6. GABAPENTIN [Concomitant]
     Indication: PRODUCT USED FOR UNKNOWN INDICATION
     Dosage: 400 MG, TID
     Route: 048
     Dates: end: 20131217

REACTIONS (2)
  - Incorrect dose administered [Unknown]
  - Pneumonia [Fatal]
